FAERS Safety Report 10080622 (Version 1)
Quarter: 2014Q2

REPORT INFORMATION
  Report Type: Spontaneous
  Country: GB (occurrence: None)
  Receive Date: 20140414
  Receipt Date: 20140414
  Transmission Date: 20141212
  Serious: Yes (Other)
  Sender: FDA-Public Use
  Company Number: KAD201404-000394

PATIENT
  Age: 37 Year
  Sex: Male

DRUGS (5)
  1. RIAVIRIN [Suspect]
     Indication: HEPATITIS C
     Route: 048
     Dates: start: 20140113, end: 20140311
  2. PEGASYS (PEGINTERFERON ALFA-2A) [Suspect]
     Indication: HEPATITIS C
     Route: 058
     Dates: start: 20140113, end: 20140311
  3. INCIVO (TELAPREVIR) [Suspect]
     Indication: HEPATITIS C
     Route: 048
     Dates: start: 20140113, end: 20140311
  4. METHADONE (METHADONE) [Concomitant]
  5. SERTRALINE (SERTRALINE) [Concomitant]

REACTIONS (3)
  - Elevated mood [None]
  - Irritability [None]
  - Rash [None]
